FAERS Safety Report 12352846 (Version 2)
Quarter: 2016Q2

REPORT INFORMATION
  Report Type: Spontaneous
  Country: US (occurrence: US)
  Receive Date: 20160510
  Receipt Date: 20160524
  Transmission Date: 20160815
  Serious: Yes (Other)
  Sender: FDA-Public Use
  Company Number: US-MDT-ADR-2016-00840

PATIENT
  Age: 11 Year
  Sex: Male

DRUGS (1)
  1. BACLOFEN. [Suspect]
     Active Substance: BACLOFEN
     Dosage: 602.5MCG/DAY
     Route: 037

REACTIONS (2)
  - Drug withdrawal syndrome [Unknown]
  - Muscle tightness [Unknown]
